FAERS Safety Report 4922707-X (Version None)
Quarter: 2006Q1

REPORT INFORMATION
  Report Type: 
  Country: None (occurrence: None)
  Receive Date: 20060221
  Receipt Date: 20050629
  Transmission Date: 20060701
  Serious: Yes (Hospitalization)
  Sender: FDA-Public Use
  Company Number: T01-AUS-00228-01

PATIENT
  Age: 57 Year
  Sex: Male

DRUGS (4)
  1. MEMANTINE HCL [Suspect]
     Indication: GLAUCOMA
     Dosage: 20 MG QD PO
     Route: 048
     Dates: start: 20000918, end: 20010110
  2. VOLTAREN [Suspect]
     Dosage: 50 MG TID PO
     Route: 048
     Dates: start: 20001220, end: 20010101
  3. NAPROXEN [Concomitant]
  4. DICLOFENAC SODIUM [Concomitant]

REACTIONS (8)
  - CONCUSSION [None]
  - FALL [None]
  - FEELING ABNORMAL [None]
  - HEADACHE [None]
  - LABORATORY TEST INTERFERENCE [None]
  - RENAL IMPAIRMENT [None]
  - SUBDURAL HAEMATOMA [None]
  - SYNCOPE [None]
